FAERS Safety Report 15927662 (Version 3)
Quarter: 2019Q3

REPORT INFORMATION
  Report Type: Spontaneous
  Country: US (occurrence: US)
  Receive Date: 20190206
  Receipt Date: 20190821
  Transmission Date: 20191004
  Serious: Yes (Hospitalization, Other)
  Sender: FDA-Public Use
  Company Number: US-TORRENT-00007597

PATIENT
  Sex: Female
  Weight: 70 kg

DRUGS (2)
  1. ZOLPIDEM [Concomitant]
     Active Substance: ZOLPIDEM TARTRATE
     Indication: INSOMNIA
     Dosage: 10MG BY CUTTING IT IN HALF (5 MG) PER DAY
  2. LOSARTAN. [Suspect]
     Active Substance: LOSARTAN
     Indication: HYPERTENSION
     Dosage: ONE PILL PER DAY
     Dates: start: 201403, end: 201901

REACTIONS (3)
  - Neutropenia [Unknown]
  - Mastectomy [Unknown]
  - Breast cancer stage III [Recovering/Resolving]

NARRATIVE: CASE EVENT DATE: 2017
